FAERS Safety Report 14113893 (Version 1)
Quarter: 2017Q4

REPORT INFORMATION
  Report Type: Spontaneous
  Country: CN (occurrence: CN)
  Receive Date: 20171023
  Receipt Date: 20171023
  Transmission Date: 20180321
  Serious: Yes (Hospitalization)
  Sender: FDA-Public Use
  Company Number: CN-INDICUS PHARMA-000499

PATIENT
  Age: 42 Year
  Sex: Female

DRUGS (1)
  1. METFORMIN [Suspect]
     Active Substance: METFORMIN HYDROCHLORIDE
     Dosage: 100 METFORMIN TABLETS (500 MG EACH)

REACTIONS (6)
  - Lactic acidosis [Unknown]
  - Vomiting [Unknown]
  - Overdose [Unknown]
  - Nausea [Unknown]
  - Hypotension [Unknown]
  - Suicide attempt [Unknown]
